FAERS Safety Report 24924944 (Version 1)
Quarter: 2025Q1

REPORT INFORMATION
  Report Type: Report from Study
  Country: US (occurrence: US)
  Receive Date: 20250204
  Receipt Date: 20250204
  Transmission Date: 20250409
  Serious: No
  Sender: EXELIXIS
  Company Number: US-EXELIXIS-CABO-24077347

PATIENT
  Sex: Male

DRUGS (12)
  1. CABOMETYX [Suspect]
     Active Substance: CABOZANTINIB S-MALATE
     Indication: Renal cell carcinoma
     Dosage: 20 MG, QD
     Dates: start: 20240401
  2. AMOXICILLIN [Concomitant]
     Active Substance: AMOXICILLIN
  3. OXYGEN [Concomitant]
     Active Substance: OXYGEN
  4. TRAMADOL [Concomitant]
     Active Substance: TRAMADOL
  5. TYLENOL [Concomitant]
     Active Substance: ACETAMINOPHEN
  6. CHLORHEXIDINE GLUCONATE [Concomitant]
     Active Substance: CHLORHEXIDINE GLUCONATE
  7. ONDANSETRON [Concomitant]
     Active Substance: ONDANSETRON
  8. STOOL SOFTENER (DOCUSATE) [Concomitant]
     Active Substance: DOCUSATE
  9. MIRALAX [Concomitant]
     Active Substance: POLYETHYLENE GLYCOL 3350
  10. LASIX [Concomitant]
     Active Substance: FUROSEMIDE
  11. ASPIRIN [Concomitant]
     Active Substance: ASPIRIN
  12. ALLOPURINOL [Concomitant]
     Active Substance: ALLOPURINOL

REACTIONS (9)
  - Skin haemorrhage [Not Recovered/Not Resolved]
  - Oral discomfort [Recovering/Resolving]
  - Constipation [Recovering/Resolving]
  - Fatigue [Not Recovered/Not Resolved]
  - Hypersomnia [Not Recovered/Not Resolved]
  - Peripheral swelling [Recovering/Resolving]
  - Skin atrophy [Not Recovered/Not Resolved]
  - Cognitive disorder [Not Recovered/Not Resolved]
  - Tremor [Not Recovered/Not Resolved]
